FAERS Safety Report 8785553 (Version 2)
Quarter: 2012Q4

REPORT INFORMATION
  Report Type: 
  Country: US (occurrence: US)
  Receive Date: 20120914
  Receipt Date: 20121207
  Transmission Date: 20130627
  Serious: Yes (Disabling)
  Sender: FDA-Public Use
  Company Number: US-PFIZER INC-2012223385

PATIENT
  Age: 32 Year
  Sex: Female
  Weight: 49.89 kg

DRUGS (5)
  1. LYRICA [Suspect]
     Indication: NECK PAIN
     Dosage: 100 mg, 3x/day
     Route: 048
     Dates: start: 200909
  2. LYRICA [Suspect]
     Indication: NERVE PAIN
     Dosage: UNK
     Route: 048
  3. LYRICA [Suspect]
     Dosage: 25 mg, 1x/day
     Route: 048
  4. LYRICA [Suspect]
     Dosage: 25 mg, 3x/day
     Route: 048
  5. LYRICA [Suspect]
     Dosage: 75 mg, 3x/day
     Route: 048

REACTIONS (4)
  - Neck pain [Not Recovered/Not Resolved]
  - Feeling abnormal [Unknown]
  - Malaise [Unknown]
  - Inappropriate schedule of drug administration [Unknown]
